FAERS Safety Report 5812051-0 (Version None)
Quarter: 2008Q3

REPORT INFORMATION
  Report Type: 
  Country: None (occurrence: None)
  Receive Date: 20080716
  Receipt Date: 20080714
  Transmission Date: 20090109
  Serious: Yes (Death)
  Sender: FDA-Public Use
  Company Number: PHHY2008IN13852

PATIENT
  Sex: Female

DRUGS (4)
  1. GLEEVEC [Suspect]
     Dosage: 400 MG
  2. NEUPOGEN [Concomitant]
  3. ANTIBIOTICS [Concomitant]
  4. ANTIFUNGALS [Concomitant]

REACTIONS (1)
  - LEUKOPENIA [None]
